FAERS Safety Report 15846550 (Version 2)
Quarter: 2019Q1

REPORT INFORMATION
  Report Type: Spontaneous
  Country: CA (occurrence: CA)
  Receive Date: 20190121
  Receipt Date: 20190128
  Transmission Date: 20190417
  Serious: Yes (Hospitalization)
  Sender: FDA-Public Use
  Company Number: CA-CELLTRION INC.-2018CA025160

PATIENT

DRUGS (4)
  1. ASACOL [Concomitant]
     Active Substance: MESALAMINE
     Dosage: 6 G, DAILY
  2. PREDNISONE. [Concomitant]
     Active Substance: PREDNISONE
     Dosage: 40 MG TAPER ORALLY
     Route: 048
  3. INFLECTRA [Suspect]
     Active Substance: INFLIXIMAB-DYYB
     Indication: COLITIS ULCERATIVE
     Dosage: 400 MG, EVERY 2, 6 WEEKS THEN EVERY 8 WEEKS
     Route: 042
     Dates: start: 20181206
  4. SALOFALK  [MESALAZINE] [Concomitant]
     Dosage: UNK
     Route: 048
     Dates: start: 2016

REACTIONS (3)
  - Clostridium difficile infection [Recovering/Resolving]
  - Infection [Not Recovered/Not Resolved]
  - C-reactive protein increased [Unknown]
